FAERS Safety Report 10234993 (Version 1)
Quarter: 2014Q2

REPORT INFORMATION
  Report Type: Spontaneous
  Country: US (occurrence: None)
  Receive Date: 20140611
  Receipt Date: 20140611
  Transmission Date: 20141212
  Serious: Yes (Death)
  Sender: FDA-Public Use
  Company Number: 201405000235

PATIENT
  Age: 40 Year
  Sex: Female
  Weight: 93.4 kg

DRUGS (1)
  1. INOMAX (NITRIC OXIDE) [Suspect]
     Indication: ACUTE RESPIRATORY DISTRESS SYNDROME
     Dosage: 20 PPM, CONTINUOUS
     Route: 055
     Dates: start: 20140529, end: 20140529

REACTIONS (1)
  - Off label use [None]
